FAERS Safety Report 7788706-8 (Version None)
Quarter: 2011Q3

REPORT INFORMATION
  Report Type: 
  Country: None (occurrence: None)
  Receive Date: 20110928
  Receipt Date: 20110922
  Transmission Date: 20111222
  Serious: Yes (Hospitalization, Other)
  Sender: FDA-Public Use
  Company Number: 201111229

PATIENT
  Sex: Male

DRUGS (1)
  1. LIORESAL [Suspect]
     Indication: MUSCLE SPASTICITY
     Dosage: 1400 MCG, DAILY, INTRATHECAL
     Route: 037

REACTIONS (6)
  - DRUG WITHDRAWAL SYNDROME [None]
  - MUSCULOSKELETAL DISORDER [None]
  - SKIN GRAFT [None]
  - FEELING ABNORMAL [None]
  - TREATMENT NONCOMPLIANCE [None]
  - PRURITUS [None]
